FAERS Safety Report 5162129-2 (Version None)
Quarter: 2006Q4

REPORT INFORMATION
  Report Type: 
  Country: None (occurrence: None)
  Receive Date: 20061117
  Receipt Date: 20061109
  Transmission Date: 20070319
  Serious: No
  Sender: FDA-Public Use
  Company Number: 2006-150131-NL

PATIENT
  Age: 28 Year
  Sex: Female

DRUGS (4)
  1. ETONOGESTREL [Suspect]
     Indication: CONTRACEPTION
     Dosage: DF, NI/SUBCUTANEOUS
     Route: 058
     Dates: end: 20060927
  2. ETONOGESTREL [Suspect]
     Indication: CONTRACEPTION
     Dosage: DF, NI/SUBCUTANEOUS
     Route: 058
     Dates: start: 20060927
  3. DOSULEPIN [Concomitant]
  4. PROPANOL [Concomitant]

REACTIONS (4)
  - HYPERAESTHESIA [None]
  - NEURALGIA [None]
  - PAIN [None]
  - THROMBOPHLEBITIS SUPERFICIAL [None]
